FAERS Safety Report 4488163-3 (Version None)
Quarter: 2004Q4

REPORT INFORMATION
  Report Type: 
  Country: None (occurrence: None)
  Receive Date: 20041025
  Receipt Date: 20041013
  Transmission Date: 20050328
  Serious: Yes (Hospitalization)
  Sender: FDA-Public Use
  Company Number: 2004238936DE

PATIENT

DRUGS (1)
  1. GENOTROPIN [Suspect]
     Indication: PRADER-WILLI SYNDROME

REACTIONS (3)
  - BREATHING-RELATED SLEEP DISORDER [None]
  - INFECTION [None]
  - SLEEP APNOEA SYNDROME [None]
